FAERS Safety Report 24425196 (Version 1)
Quarter: 2024Q4

REPORT INFORMATION
  Report Type: Spontaneous
  Country: US (occurrence: US)
  Receive Date: 20241010
  Receipt Date: 20241010
  Transmission Date: 20250114
  Serious: No
  Sender: AMGEN
  Company Number: US-AMGEN-USASP2024196963

PATIENT
  Sex: Female

DRUGS (5)
  1. ADALIMUMAB [Suspect]
     Active Substance: ADALIMUMAB
     Indication: Hidradenitis
     Dosage: UNK
     Route: 065
  2. INFLIXIMAB [Suspect]
     Active Substance: INFLIXIMAB
     Indication: Hidradenitis
     Dosage: UNK
     Route: 065
  3. SPIRONOLACTONE [Concomitant]
     Active Substance: SPIRONOLACTONE
     Indication: Product used for unknown indication
     Dosage: UNK
     Route: 065
  4. TIRZEPATIDE [Concomitant]
     Active Substance: TIRZEPATIDE
     Indication: Product used for unknown indication
     Dosage: 2.5 MILLIGRAM/ 0.5 ML, QWK
     Route: 065
  5. TIRZEPATIDE [Concomitant]
     Active Substance: TIRZEPATIDE
     Dosage: 7.5 MILLIGRAM/ 0.5 ML, QWK
     Route: 065

REACTIONS (3)
  - Treatment failure [Unknown]
  - Drug effective for unapproved indication [Unknown]
  - Off label use [Unknown]
